FAERS Safety Report 8883361 (Version 1)
Quarter: 2012Q4

REPORT INFORMATION
  Report Type: 
  Country: FR (occurrence: FR)
  Receive Date: 20121102
  Receipt Date: 20121102
  Transmission Date: 20130627
  Serious: Yes (Hospitalization)
  Sender: FDA-Public Use
  Company Number: FR-JNJFOC-20121012172

PATIENT
  Sex: Female

DRUGS (7)
  1. XARELTO [Suspect]
     Indication: THROMBOSIS PROPHYLAXIS
     Route: 048
  2. PARACETAMOL [Concomitant]
     Route: 065
  3. ATARAX [Concomitant]
     Route: 065
  4. OPTRUMA [Concomitant]
     Route: 065
  5. IDEOS [Concomitant]
     Route: 065
  6. INEXIUM [Concomitant]
     Route: 065
  7. TOPALGIC [Concomitant]
     Route: 065

REACTIONS (2)
  - Pruritus [Recovered/Resolved]
  - Rash [Recovered/Resolved]
